FAERS Safety Report 17161285 (Version 1)
Quarter: 2019Q4

REPORT INFORMATION
  Report Type: Spontaneous
  Country: US (occurrence: US)
  Receive Date: 20191216
  Receipt Date: 20191216
  Transmission Date: 20200122
  Serious: No
  Sender: FDA-Public Use
  Company Number: NVSC2019US008672

PATIENT
  Sex: Female

DRUGS (1)
  1. AFINITOR [Suspect]
     Active Substance: EVEROLIMUS
     Indication: INVASIVE LOBULAR BREAST CARCINOMA
     Dosage: 5 MG, QD
     Route: 048
     Dates: start: 20190424

REACTIONS (3)
  - Frequent bowel movements [Unknown]
  - Weight increased [Unknown]
  - Gastrointestinal motility disorder [Unknown]
